FAERS Safety Report 11637797 (Version 1)
Quarter: 2015Q4

REPORT INFORMATION
  Report Type: Spontaneous
  Country: US (occurrence: US)
  Receive Date: 20151016
  Receipt Date: 20151016
  Transmission Date: 20160304
  Serious: Yes (Death)
  Sender: FDA-Public Use
  Company Number: US-PFIZER INC-2015343379

PATIENT
  Age: 66 Year
  Sex: Male

DRUGS (1)
  1. SINEQUAN [Suspect]
     Active Substance: DOXEPIN HYDROCHLORIDE
     Dosage: UNK

REACTIONS (3)
  - Overdose [Unknown]
  - Intentional self-injury [Fatal]
  - Completed suicide [Fatal]

NARRATIVE: CASE EVENT DATE: 19700225
